FAERS Safety Report 19771418 (Version 3)
Quarter: 2022Q1

REPORT INFORMATION
  Report Type: Report from Study
  Country: JP (occurrence: JP)
  Receive Date: 20210831
  Receipt Date: 20220331
  Transmission Date: 20220424
  Serious: Yes (Hospitalization)
  Sender: FDA-Public Use
  Company Number: JP-JNJFOC-A-CH2017-157897

PATIENT
  Age: 71 Year
  Sex: Female
  Weight: 35.6 kg

DRUGS (50)
  1. OPSUMIT [Suspect]
     Active Substance: MACITENTAN
     Indication: Pulmonary arterial hypertension
     Dosage: 5 MG, QD
     Route: 048
     Dates: start: 20150929, end: 20151203
  2. OPSUMIT [Suspect]
     Active Substance: MACITENTAN
     Dosage: 10 MG, QD IN THE MORNING
     Route: 048
     Dates: start: 20150831, end: 20150928
  3. OPSUMIT [Suspect]
     Active Substance: MACITENTAN
     Dosage: 10 MG, QD, IN THE MORNING
     Route: 048
     Dates: start: 20151218
  4. UPTRAVI [Suspect]
     Active Substance: SELEXIPAG
     Indication: Pulmonary arterial hypertension
     Dosage: 0.2 MCG, BID
     Route: 048
     Dates: start: 20170418, end: 20170424
  5. UPTRAVI [Suspect]
     Active Substance: SELEXIPAG
     Dosage: 0.4 MCG, BID
     Route: 048
     Dates: start: 20170428, end: 20170509
  6. UPTRAVI [Suspect]
     Active Substance: SELEXIPAG
     Dosage: 0.6 MCG, BID
     Route: 048
     Dates: start: 20170510, end: 20170522
  7. UPTRAVI [Suspect]
     Active Substance: SELEXIPAG
     Dosage: 0.8 MCG, BID
     Route: 048
     Dates: start: 20170523
  8. ASPIRIN [Concomitant]
     Active Substance: ASPIRIN
     Indication: Myocardial ischaemia
     Dosage: 100 MG, QD
     Route: 048
     Dates: start: 20120921
  9. BERAPROST SODIUM [Concomitant]
     Active Substance: BERAPROST SODIUM
     Indication: Pulmonary arterial hypertension
     Route: 048
     Dates: start: 20120925
  10. BERAPROST SODIUM [Concomitant]
     Active Substance: BERAPROST SODIUM
     Route: 048
     Dates: start: 20170417
  11. ADCIRCA [Concomitant]
     Active Substance: TADALAFIL
     Indication: Pulmonary arterial hypertension
     Dosage: 40 MG, QD
     Route: 048
     Dates: start: 20121001
  12. TORSEMIDE [Concomitant]
     Active Substance: TORSEMIDE
     Indication: Right ventricular failure
     Dosage: 2 MG, QD
     Route: 048
     Dates: start: 20170704, end: 20170801
  13. TORSEMIDE [Concomitant]
     Active Substance: TORSEMIDE
     Route: 048
     Dates: start: 20120921, end: 20170801
  14. TORSEMIDE [Concomitant]
     Active Substance: TORSEMIDE
     Route: 048
  15. ELIQUIS [Concomitant]
     Active Substance: APIXABAN
     Indication: Atrial tachycardia
     Dosage: 5 MG, QD
  16. ELIQUIS [Concomitant]
     Active Substance: APIXABAN
     Route: 048
     Dates: start: 20151221
  17. TRICHLORMETHIAZIDE [Concomitant]
     Active Substance: TRICHLORMETHIAZIDE
     Indication: Right ventricular failure
     Route: 048
     Dates: start: 20151221
  18. TRICHLORMETHIAZIDE [Concomitant]
     Active Substance: TRICHLORMETHIAZIDE
     Route: 048
     Dates: start: 20151221, end: 20170411
  19. SPIRONOLACTONE [Concomitant]
     Active Substance: SPIRONOLACTONE
     Indication: Right ventricular failure
     Dosage: 50 MG, QD
     Route: 048
  20. SPIRONOLACTONE [Concomitant]
     Active Substance: SPIRONOLACTONE
     Route: 048
     Dates: start: 20170119, end: 20170810
  21. SPIRONOLACTONE [Concomitant]
     Active Substance: SPIRONOLACTONE
     Dosage: 50MG IN THE MORNING AND 25 MG IN THE EVENING
     Route: 048
     Dates: start: 20170811, end: 20180212
  22. SPIRONOLACTONE [Concomitant]
     Active Substance: SPIRONOLACTONE
     Route: 048
     Dates: start: 20180213
  23. ZOLPIDEM [Concomitant]
     Active Substance: ZOLPIDEM TARTRATE
     Indication: Insomnia
     Dosage: 2.5 MG, QD
     Route: 048
     Dates: end: 20190108
  24. ZOLPIDEM [Concomitant]
     Active Substance: ZOLPIDEM TARTRATE
     Dosage: 5 MG, QD
     Route: 048
     Dates: start: 20190108
  25. ZOLPIDEM [Concomitant]
     Active Substance: ZOLPIDEM TARTRATE
     Dosage: 5 MG, QD
     Route: 048
     Dates: start: 20130108, end: 20150928
  26. ZOLPIDEM [Concomitant]
     Active Substance: ZOLPIDEM TARTRATE
     Dosage: 5 MG, QD
     Route: 048
     Dates: start: 20170912, end: 20180212
  27. ATORVASTATIN CALCIUM [Concomitant]
     Active Substance: ATORVASTATIN CALCIUM
     Indication: Dyslipidaemia
     Dosage: 10 MG, QD
     Dates: start: 20150727
  28. ATORVASTATIN CALCIUM [Concomitant]
     Active Substance: ATORVASTATIN CALCIUM
     Indication: Prophylaxis
  29. CARVEDILOL [Concomitant]
     Active Substance: CARVEDILOL
     Indication: Atrial tachycardia
     Dosage: 20 MG, QD
     Route: 048
     Dates: end: 20170523
  30. CARVEDILOL [Concomitant]
     Active Substance: CARVEDILOL
     Route: 048
     Dates: start: 20120921, end: 20170523
  31. CARVEDILOL [Concomitant]
     Active Substance: CARVEDILOL
     Route: 048
  32. CARVEDILOL [Concomitant]
     Active Substance: CARVEDILOL
     Route: 048
     Dates: end: 20170522
  33. RABEPRAZOLE SODIUM [Concomitant]
     Active Substance: RABEPRAZOLE SODIUM
     Indication: Gastritis prophylaxis
     Dosage: 10 MG, QD
     Dates: end: 20171024
  34. RABEPRAZOLE SODIUM [Concomitant]
     Active Substance: RABEPRAZOLE SODIUM
     Dosage: 10 MG, QD
     Dates: start: 20120921, end: 20170801
  35. FERROUS SULFATE [Concomitant]
     Active Substance: FERROUS SULFATE
     Indication: Iron deficiency anaemia
     Dosage: 420 MG, QD
     Dates: end: 20170809
  36. FERROUS SULFATE [Concomitant]
     Active Substance: FERROUS SULFATE
     Dates: start: 20150831
  37. FERROUS SULFATE [Concomitant]
     Active Substance: FERROUS SULFATE
     Dates: end: 20170819
  38. SAMSCA [Concomitant]
     Active Substance: TOLVAPTAN
     Indication: Right ventricular failure
     Dosage: 7.5 MG, QD
     Route: 048
     Dates: start: 20170412
  39. CARVEDILOL [Concomitant]
     Active Substance: CARVEDILOL
     Indication: Right ventricular failure
     Dosage: 5 MG, QD
     Dates: start: 20170523, end: 20170809
  40. CARVEDILOL [Concomitant]
     Active Substance: CARVEDILOL
     Route: 048
     Dates: start: 20170523, end: 20170818
  41. AMIODARONE [Concomitant]
     Active Substance: AMIODARONE
     Dosage: 400 MG, QD
     Dates: start: 20170714, end: 20170809
  42. FUROSEMIDE [Concomitant]
     Active Substance: FUROSEMIDE
     Indication: Right ventricular failure
     Dosage: 40 MG, QD
     Route: 048
     Dates: start: 20170804, end: 20190305
  43. FUROSEMIDE [Concomitant]
     Active Substance: FUROSEMIDE
     Dosage: 20  MG, QD
     Route: 048
     Dates: start: 20190305
  44. FUROSEMIDE [Concomitant]
     Active Substance: FUROSEMIDE
     Route: 048
     Dates: start: 20170119, end: 20170123
  45. FUROSEMIDE [Concomitant]
     Active Substance: FUROSEMIDE
     Route: 048
     Dates: start: 20170801
  46. VONOPRAZAN FUMARATE [Concomitant]
     Active Substance: VONOPRAZAN FUMARATE
     Indication: Prophylaxis against gastrointestinal ulcer
     Dosage: 20 MG, QD
     Dates: start: 20180802
  47. VONOPRAZAN FUMARATE [Concomitant]
     Active Substance: VONOPRAZAN FUMARATE
     Dosage: 20 MG, QD
     Dates: start: 20170802
  48. BELSOMRA [Concomitant]
     Active Substance: SUVOREXANT
     Indication: Insomnia
     Dosage: 15 MG, QD
     Route: 048
     Dates: start: 20180925, end: 20181211
  49. BELSOMRA [Concomitant]
     Active Substance: SUVOREXANT
     Dosage: 15 MG, QD
     Route: 048
     Dates: start: 20180925, end: 20181210
  50. OXYGEN [Concomitant]
     Active Substance: OXYGEN
     Dosage: DOSE UNKNOWN
     Route: 055

REACTIONS (9)
  - Cardiac failure [Recovered/Resolved]
  - Dyspnoea exertional [Recovered/Resolved]
  - Atrial tachycardia [Recovered/Resolved]
  - Cardiac ablation [Unknown]
  - Malaise [Recovered/Resolved]
  - Abdominal distension [Recovered/Resolved]
  - Blood pressure decreased [Recovered/Resolved]
  - Anaemia [Recovering/Resolving]
  - Platelet count decreased [Recovering/Resolving]

NARRATIVE: CASE EVENT DATE: 20150928
